FAERS Safety Report 7240803-1 (Version None)
Quarter: 2011Q1

REPORT INFORMATION
  Report Type: 
  Country: None (occurrence: None)
  Receive Date: 20110124
  Receipt Date: 20110113
  Transmission Date: 20110831
  Serious: Yes (Hospitalization)
  Sender: FDA-Public Use
  Company Number: AT-JNJFOC-20110103991

PATIENT
  Age: 48 Year
  Sex: Female
  Weight: 61 kg

DRUGS (1)
  1. CAELYX [Suspect]
     Indication: OVARIAN CANCER
     Dosage: IN 250 ML GLUCOSE
     Route: 042

REACTIONS (4)
  - BACK PAIN [None]
  - HEADACHE [None]
  - LOCAL SWELLING [None]
  - ERYTHEMA [None]
